FAERS Safety Report 6612209-7 (Version None)
Quarter: 2010Q1

REPORT INFORMATION
  Report Type: 
  Country: None (occurrence: None)
  Receive Date: 20100303
  Receipt Date: 20100222
  Transmission Date: 20100710
  Serious: Yes (Hospitalization, Other)
  Sender: FDA-Public Use
  Company Number: TR-BRISTOL-MYERS SQUIBB COMPANY-14987010

PATIENT
  Age: 26 Year
  Sex: Female

DRUGS (9)
  1. DOXORUBICIN HCL [Suspect]
     Indication: NON-HODGKIN'S LYMPHOMA
  2. CYCLOPHOSPHAMIDE [Suspect]
     Indication: NON-HODGKIN'S LYMPHOMA
  3. BLEOMYCIN SULFATE [Suspect]
     Indication: HODGKIN'S DISEASE
  4. VINCRISTINE SULFATE [Suspect]
     Indication: NON-HODGKIN'S LYMPHOMA
  5. PREDNISONE [Suspect]
     Indication: NON-HODGKIN'S LYMPHOMA
  6. ADRIAMYCIN PFS [Suspect]
     Indication: HODGKIN'S DISEASE
  7. VINBLASTINE [Suspect]
     Indication: HODGKIN'S DISEASE
  8. DEXAMETHASONE [Suspect]
     Indication: HODGKIN'S DISEASE
  9. RADIOTHERAPY [Suspect]
     Indication: NON-HODGKIN'S LYMPHOMA
     Dosage: 1 DF = 4000 CGY 1 DF =1980  CGY AFTER 2 YEARS

REACTIONS (3)
  - CARDIAC FAILURE CONGESTIVE [None]
  - CEREBRAL INFARCTION [None]
  - HEMIPLEGIA [None]
